FAERS Safety Report 17151326 (Version 3)
Quarter: 2020Q1

REPORT INFORMATION
  Report Type: Spontaneous
  Country: US (occurrence: US)
  Receive Date: 20191213
  Receipt Date: 20200331
  Transmission Date: 20200409
  Serious: Yes (Hospitalization)
  Sender: FDA-Public Use
  Company Number: US-PFIZER INC-2019536637

PATIENT
  Age: 57 Year
  Sex: Male
  Weight: 87.44 kg

DRUGS (1)
  1. AMLODIPINE/ATORVASTATIN [Suspect]
     Active Substance: AMLODIPINE BESYLATE\ATORVASTATIN CALCIUM
     Indication: BLOOD PRESSURE ABNORMAL
     Dosage: UNK

REACTIONS (2)
  - Blood pressure inadequately controlled [Recovered/Resolved]
  - Drug ineffective [Recovered/Resolved]
